FAERS Safety Report 8917247 (Version 2)
Quarter: 2013Q3

REPORT INFORMATION
  Report Type: Report from Study
  Country: JP (occurrence: JP)
  Receive Date: 20121120
  Receipt Date: 20130917
  Transmission Date: 20140515
  Serious: Yes (Other)
  Sender: FDA-Public Use
  Company Number: JP-VERTEX PHARMACEUTICAL INC.-2012-024781

PATIENT
  Age: 53 Year
  Sex: Female

DRUGS (9)
  1. VX-950 (TELAPREVIR) [Suspect]
     Indication: CHRONIC HEPATITIS C
     Dosage: 1500 MG, QD
     Route: 048
     Dates: start: 20120528, end: 20120722
  2. VX-950 (TELAPREVIR) [Suspect]
     Dosage: 750 MG, QD
     Route: 048
     Dates: start: 20120723, end: 20120820
  3. REBETOL [Suspect]
     Indication: CHRONIC HEPATITIS C
     Dosage: 600 MG, QD
     Route: 048
     Dates: start: 20120528, end: 20120610
  4. REBETOL [Suspect]
     Dosage: 200 MG, QD
     Route: 048
     Dates: start: 20120611, end: 20121014
  5. REBETOL [Suspect]
     Dosage: 400 MG, QD
     Route: 048
     Dates: start: 20121015, end: 20121104
  6. PEGINTRON [Suspect]
     Indication: CHRONIC HEPATITIS C
     Dosage: 1.5 ?G/KG, QW
     Route: 058
     Dates: start: 20120528, end: 20120611
  7. PEGINTRON [Suspect]
     Dosage: 1.2 ?G/KG, QW
     Route: 058
     Dates: start: 20120618, end: 20120717
  8. PEGINTRON [Suspect]
     Dosage: 0.7 ?G/KG, QW
     Route: 058
     Dates: start: 20120723, end: 20120827
  9. PEGINTRON [Suspect]
     Dosage: 1.2 ?G/KG, QW
     Route: 058
     Dates: start: 20120903, end: 20120910

REACTIONS (1)
  - Retinopathy [Not Recovered/Not Resolved]
